FAERS Safety Report 4828265-2 (Version None)
Quarter: 2005Q4

REPORT INFORMATION
  Report Type: 
  Country: None (occurrence: None)
  Receive Date: 20051114
  Receipt Date: 20051114
  Transmission Date: 20060501
  Serious: Yes (Other)
  Sender: FDA-Public Use
  Company Number: None

PATIENT
  Age: 58 Year
  Sex: Male
  Weight: 82.2 kg

DRUGS (2)
  1. AMITRIPTYLINE HCL [Suspect]
     Dosage: 20 MG QD PO
     Route: 048
     Dates: start: 20050406
  2. AMITRIPTYLINE HCL [Suspect]
     Dosage: 20 MG QD PO
     Route: 048
     Dates: start: 20050705

REACTIONS (3)
  - ADVERSE DRUG REACTION [None]
  - BALANCE DISORDER [None]
  - COORDINATION ABNORMAL [None]
